FAERS Safety Report 16635172 (Version 4)
Quarter: 2019Q4

REPORT INFORMATION
  Report Type: Spontaneous
  Country: JP (occurrence: JP)
  Receive Date: 20190726
  Receipt Date: 20191210
  Transmission Date: 20200122
  Serious: Yes (Life-Threatening, Hospitalization, Other)
  Sender: FDA-Public Use
  Company Number: PHJP2019JP009472

PATIENT
  Age: 67 Year
  Sex: Male
  Weight: 58.85 kg

DRUGS (7)
  1. EQUMET [Suspect]
     Active Substance: METFORMIN HYDROCHLORIDE\VILDAGLIPTIN
     Indication: TYPE 2 DIABETES MELLITUS
     Dosage: METFORMIN:UNK/VILDAGLIPTIN: 50MG
     Route: 048
     Dates: start: 20180705, end: 20180723
  2. NESINA [Concomitant]
     Active Substance: ALOGLIPTIN BENZOATE
     Indication: DIABETES MELLITUS MANAGEMENT
     Dosage: UNK
     Route: 048
     Dates: start: 20150613, end: 20180704
  3. SUGLAT [Concomitant]
     Active Substance: IPRAGLIFLOZIN L-PROLINE
     Indication: DIABETES MELLITUS MANAGEMENT
     Dosage: UNK
     Route: 048
     Dates: start: 20180507, end: 20180723
  4. PENGOOD [Suspect]
     Active Substance: BACAMPICILLIN HYDROCHLORIDE
     Indication: PRODUCT USED FOR UNKNOWN INDICATION
     Dosage: UNK
     Route: 048
     Dates: start: 20180721, end: 20180721
  5. E KEPPRA [Concomitant]
     Active Substance: LEVETIRACETAM
     Indication: EPILEPSY
     Dosage: 250 MG, BID
     Route: 048
     Dates: start: 20150924
  6. METGLUCO [Concomitant]
     Active Substance: METFORMIN HYDROCHLORIDE
     Indication: DIABETES MELLITUS MANAGEMENT
     Dosage: UNK
     Route: 048
     Dates: start: 20150613, end: 20180704
  7. ZONISAMIDE. [Concomitant]
     Active Substance: ZONISAMIDE
     Indication: EPILEPSY
     Dosage: 100 MG, BID
     Route: 048
     Dates: start: 20150924

REACTIONS (13)
  - Renal impairment [Unknown]
  - Toxic epidermal necrolysis [Recovering/Resolving]
  - Skin erosion [Recovering/Resolving]
  - Rash [Recovering/Resolving]
  - Mucosal disorder [Unknown]
  - Dermatitis bullous [Unknown]
  - Skin necrosis [Unknown]
  - Bacteraemia [Recovering/Resolving]
  - Erythema [Recovering/Resolving]
  - Lymphocytic infiltration [Unknown]
  - Nikolsky^s sign [Unknown]
  - Pyrexia [Recovering/Resolving]
  - Hepatic function abnormal [Unknown]

NARRATIVE: CASE EVENT DATE: 20180722
